FAERS Safety Report 25803693 (Version 4)
Quarter: 2025Q4

REPORT INFORMATION
  Report Type: Spontaneous
  Country: US (occurrence: US)
  Receive Date: 20250915
  Receipt Date: 20251212
  Transmission Date: 20260119
  Serious: Yes (Hospitalization, Other)
  Sender: BRISTOL-MYERS SQUIBB COMPANY
  Company Number: US-BRISTOL-MYERS SQUIBB COMPANY-2025-126856

PATIENT
  Age: 69 Year
  Sex: Female

DRUGS (2)
  1. REVLIMID [Suspect]
     Active Substance: LENALIDOMIDE
     Indication: Follicular lymphoma
     Dosage: QD
     Route: 048
  2. REVLIMID [Suspect]
     Active Substance: LENALIDOMIDE
     Dosage: DAILY FOR 21 DAYS ON
     Route: 048

REACTIONS (14)
  - Syncope [Unknown]
  - Nausea [Unknown]
  - Diarrhoea [Unknown]
  - Fatigue [Unknown]
  - COVID-19 [Unknown]
  - Dizziness [Unknown]
  - Abdominal pain lower [Unknown]
  - Pneumonia [Unknown]
  - Stomatitis [Unknown]
  - Vitreous floaters [Unknown]
  - Sputum discoloured [Recovering/Resolving]
  - Dry mouth [Unknown]
  - Rosacea [Unknown]
  - Pharyngeal disorder [Unknown]

NARRATIVE: CASE EVENT DATE: 20251101
